FAERS Safety Report 18344910 (Version 1)
Quarter: 2020Q4

REPORT INFORMATION
  Report Type: Spontaneous
  Country: GB (occurrence: GB)
  Receive Date: 20201005
  Receipt Date: 20201005
  Transmission Date: 20210114
  Serious: Yes (Hospitalization, Other)
  Sender: FDA-Public Use
  Company Number: GB-ENDO PHARMACEUTICALS INC-2020-006482

PATIENT
  Age: 15 Year
  Sex: Male
  Weight: 50 kg

DRUGS (1)
  1. AVEED [Suspect]
     Active Substance: TESTOSTERONE UNDECANOATE
     Indication: PUBERTY
     Dosage: 1.3 ML, ONCE EVERY 4WKS (RECEIVED 2 DSES)
     Route: 030
     Dates: start: 20200107

REACTIONS (4)
  - Sleep apnoea syndrome [Not Recovered/Not Resolved]
  - Off label use [Unknown]
  - Seizure [Not Recovered/Not Resolved]
  - Accidental overdose [Not Recovered/Not Resolved]

NARRATIVE: CASE EVENT DATE: 20200117
